FAERS Safety Report 9331782 (Version 2)
Quarter: 2013Q2

REPORT INFORMATION
  Report Type: Spontaneous
  Country: DE (occurrence: None)
  Receive Date: 20130603
  Receipt Date: 20130618
  Transmission Date: 20140414
  Serious: Yes (Death)
  Sender: FDA-Public Use
  Company Number: TPG2013A00591

PATIENT
  Age: 72 Year
  Sex: Male

DRUGS (6)
  1. EDARBI (AZILSARTAN MEDOXOMIL) [Suspect]
     Indication: ESSENTIAL HYPERTENSION
     Route: 048
     Dates: start: 20120326, end: 201301
  2. TAMSULOSIN [Concomitant]
  3. HYDROCORTISONE [Concomitant]
  4. ASTONIN (CYPROHEPTADINE HYDROCHLORIDE) [Concomitant]
  5. PANTOZOL (PANTOPRAZOLE SODIUM SESQUIHYDRATE) [Concomitant]
  6. INSUMAN RAPID (INSULIN HUMAN) [Concomitant]

REACTIONS (2)
  - Death [None]
  - Prostate cancer [None]
